FAERS Safety Report 22107473 (Version 1)
Quarter: 2023Q1

REPORT INFORMATION
  Report Type: Report from Study
  Country: JP (occurrence: JP)
  Receive Date: 20230317
  Receipt Date: 20230317
  Transmission Date: 20230418
  Serious: Yes (Hospitalization)
  Sender: FDA-Public Use
  Company Number: JP-KADMON-JP-KAD-22-00672

PATIENT
  Age: 47 Year
  Sex: Male

DRUGS (29)
  1. BELUMOSUDIL MESYLATE [Suspect]
     Active Substance: BELUMOSUDIL MESYLATE
     Indication: Chronic graft versus host disease
     Dosage: 200 MG, QD
     Route: 048
     Dates: start: 20220112
  2. PREDNISOLONE [Concomitant]
     Active Substance: PREDNISOLONE
     Indication: Chronic graft versus host disease
     Dosage: 12 MG, QD
     Route: 048
     Dates: start: 20211222
  3. PREDNISOLONE [Concomitant]
     Active Substance: PREDNISOLONE
     Dosage: 12.5 MG, QD
     Route: 048
     Dates: start: 20220531, end: 20220725
  4. PREDNISOLONE [Concomitant]
     Active Substance: PREDNISOLONE
     Dosage: 15 MG, QD
     Route: 048
     Dates: start: 20211222
  5. PREDNISOLONE [Concomitant]
     Active Substance: PREDNISOLONE
     Dosage: 11 MG
     Route: 048
     Dates: start: 20230124
  6. TACROLIMUS [Concomitant]
     Active Substance: TACROLIMUS
     Indication: Chronic graft versus host disease
     Dosage: 0.4 MG, QD
     Route: 048
     Dates: start: 20200817
  7. FAMOTIDINE [Concomitant]
     Active Substance: FAMOTIDINE
     Indication: Prophylaxis against gastrointestinal ulcer
     Dosage: 20 MILLIGRAM, QD
     Route: 048
     Dates: start: 20201120
  8. URSODIOL [Concomitant]
     Active Substance: URSODIOL
     Indication: Chronic graft versus host disease
     Dosage: 400 MILLIGRAM, QD
     Route: 048
     Dates: start: 20180820
  9. SULFAMETHOXAZOLE\TRIMETHOPRIM [Concomitant]
     Active Substance: SULFAMETHOXAZOLE\TRIMETHOPRIM
     Indication: Infection prophylaxis
     Dosage: UNK
     Route: 048
     Dates: start: 20190202
  10. MAGNESIUM OXIDE [Concomitant]
     Active Substance: MAGNESIUM OXIDE
     Indication: Constipation
     Dosage: 660 MILLIGRAM, QD
     Route: 048
     Dates: start: 20210104
  11. SODIUM HYALURONATE [Concomitant]
     Active Substance: HYALURONATE SODIUM
     Indication: Chronic graft versus host disease
     Dosage: UNK, PRN
     Route: 047
     Dates: start: 20210119
  12. LATANOPROST [Concomitant]
     Active Substance: LATANOPROST
     Indication: Glaucoma
     Dosage: 1 DROP, QD
     Route: 047
     Dates: start: 20211213
  13. FLAVIN-ADENINE DINUCLEOTIDE DISODIUM [Concomitant]
     Indication: Chronic graft versus host disease
     Dosage: UNK, PRN
     Route: 050
     Dates: start: 20210906
  14. BENZOYL PEROXIDE [Concomitant]
     Active Substance: BENZOYL PEROXIDE
     Indication: Chronic graft versus host disease
     Dosage: UNK, PRN
     Route: 062
     Dates: start: 20210719
  15. INSULIN LISPRO [Concomitant]
     Active Substance: INSULIN LISPRO
     Indication: Steroid diabetes
     Dosage: UNK
     Route: 058
     Dates: start: 20210101
  16. FLUTICASONE PROPIONATE [Concomitant]
     Active Substance: FLUTICASONE PROPIONATE
     Indication: Chronic graft versus host disease
     Dosage: UNK, PRN
     Route: 055
     Dates: start: 20220208
  17. BORIC ACID [Concomitant]
     Active Substance: BORIC ACID
     Indication: Chronic graft versus host disease
     Dosage: UNK UNK, PRN
     Route: 047
     Dates: start: 20210719
  18. DORZOLAMIDE HYDROCHLORIDE [Concomitant]
     Active Substance: DORZOLAMIDE HYDROCHLORIDE
     Indication: Glaucoma
     Dosage: 3 DROP, QD
     Route: 047
     Dates: start: 20220503
  19. DEXAMETHASONE DIPROPIONATE [Concomitant]
     Active Substance: DEXAMETHASONE DIPROPIONATE
     Indication: Chronic graft versus host disease
     Dosage: UNK UNK, PRN
     Route: 062
     Dates: start: 20220405
  20. ORYCTOLAGUS CUNICULUS SKIN [Concomitant]
     Active Substance: ORYCTOLAGUS CUNICULUS SKIN
     Indication: Herpes zoster
     Dosage: 16 DOSAGE FORM, QD
     Route: 048
     Dates: start: 20220503
  21. LEVOFLOXACIN HEMIHYDRATE [Concomitant]
     Active Substance: LEVOFLOXACIN
     Indication: Infection prophylaxis
     Dosage: 4 DROP, QD
     Route: 047
     Dates: start: 20020716
  22. PITAVASTATIN CALCIUM [Concomitant]
     Active Substance: PITAVASTATIN CALCIUM
     Indication: Dyslipidaemia
     Dosage: 2 MILLIGRAM, QD
     Route: 048
     Dates: start: 20220707
  23. TIMOLOL MALEATE [Concomitant]
     Active Substance: TIMOLOL MALEATE
     Indication: Glaucoma
     Dosage: UNK UNK, QD
     Route: 047
     Dates: start: 20221212
  24. BRIMONIDINE TARTRATE [Concomitant]
     Active Substance: BRIMONIDINE TARTRATE
     Indication: Glaucoma
     Dosage: 2 DROPS/DAY
     Route: 047
     Dates: start: 20221114
  25. BETAMETHASONE SODIUM PHOSPHATE [Concomitant]
     Active Substance: BETAMETHASONE SODIUM PHOSPHATE
     Indication: Prophylaxis
     Dosage: UNK
     Route: 047
     Dates: start: 20221212
  26. ACETAZOLAMIDE [Concomitant]
     Active Substance: ACETAZOLAMIDE
     Indication: Glaucoma
     Dosage: 500 MG, QD
     Route: 048
     Dates: start: 20221212
  27. POTASSIUM ASPARTATE [Concomitant]
     Active Substance: POTASSIUM ASPARTATE
     Indication: Prophylaxis
     Dosage: 6 MG, QD
     Route: 048
     Dates: start: 20221212
  28. HEPARINOID [Concomitant]
     Indication: Chronic graft versus host disease
     Dosage: UNK UNK, PRN
     Route: 062
     Dates: start: 20220308
  29. FLUOROMETHOLONE [Concomitant]
     Active Substance: FLUOROMETHOLONE
     Indication: Chronic graft versus host disease
     Dosage: 3 DROP, QD
     Route: 047
     Dates: start: 20220405

REACTIONS (3)
  - Pneumonia [Recovered/Resolved]
  - Cataract [Recovered/Resolved]
  - Glaucoma [Recovered/Resolved]

NARRATIVE: CASE EVENT DATE: 20220718
